FAERS Safety Report 6599838-4 (Version None)
Quarter: 2010Q1

REPORT INFORMATION
  Report Type: 
  Country: None (occurrence: None)
  Receive Date: 20100216
  Receipt Date: 20100204
  Transmission Date: 20100710
  Serious: Yes (Hospitalization)
  Sender: FDA-Public Use
  Company Number: TCI2010A00259

PATIENT
  Age: 76 Year
  Sex: Male

DRUGS (7)
  1. ACTOS [Suspect]
     Dosage: 15 MG (15 MG, 1 IN 1 D) PER ORAL
     Route: 048
     Dates: start: 20070315
  2. MUCODYNE   (CARBOCISTEINE) [Concomitant]
  3. HOKUNALIN TAPE   (TULOBUTEROL HYDROCHLORIDE) [Concomitant]
  4. SPIRIVA [Concomitant]
  5. PROTECADIN     (LAFUTIDINE) [Concomitant]
  6. OMEPRAZOLE [Concomitant]
  7. TETUCUR   (FERROPOLIMALER) [Concomitant]

REACTIONS (2)
  - LACUNAR INFARCTION [None]
  - MUSCULAR WEAKNESS [None]
